FAERS Safety Report 9064849 (Version 1)
Quarter: 2013Q1

REPORT INFORMATION
  Report Type: Spontaneous
  Country: US (occurrence: US)
  Receive Date: 20130130
  Receipt Date: 20130130
  Transmission Date: 20140127
  Serious: Yes (Hospitalization, Other)
  Sender: FDA-Public Use
  Company Number: US-009507513-1301USA013594

PATIENT
  Sex: Female

DRUGS (17)
  1. SINGULAIR [Suspect]
  2. AMLODIPINE [Concomitant]
  3. CARBAMAZEPINE [Concomitant]
  4. ACETAMINOPHEN [Concomitant]
  5. FLUOXETINE [Concomitant]
  6. ACETAMINOPHEN (+) HYDROCODONE BITARTRATE [Concomitant]
  7. CLONAZEPAM [Concomitant]
  8. CYCLOBENZAPRINE HYDROCHLORIDE [Concomitant]
  9. LAMOTRIGINE [Concomitant]
  10. LORATADINE [Concomitant]
  11. OMEPRAZOLE [Concomitant]
  12. PENICILLIN (UNSPECIFIED) [Concomitant]
  13. TRAMADOL HYDROCHLORIDE [Concomitant]
  14. ZOLPIDEM TARTRATE [Concomitant]
  15. LOXAPINE [Concomitant]
  16. COCAINE [Concomitant]
  17. STUDY DRUG (UNSPECIFIED) [Concomitant]

REACTIONS (1)
  - Suicide attempt [Unknown]
